FAERS Safety Report 9419047 (Version 2)
Quarter: 2013Q3

REPORT INFORMATION
  Report Type: Spontaneous
  Country: DE (occurrence: DE)
  Receive Date: 20130725
  Receipt Date: 20130917
  Transmission Date: 20140515
  Serious: Yes (Other)
  Sender: FDA-Public Use
  Company Number: PHHY2013DE078886

PATIENT
  Sex: Male
  Weight: 50 kg

DRUGS (7)
  1. VOTUBIA [Suspect]
     Dosage: 2.5 MG, UNK
     Route: 048
     Dates: start: 20130418
  2. LAMOTRIGIN [Concomitant]
     Indication: EPILEPSY
     Dosage: 600 MG, DAILY
     Route: 048
     Dates: start: 200609
  3. VIMPAT [Concomitant]
     Indication: EPILEPSY
     Dosage: 400 MG, DAILY
     Route: 048
     Dates: start: 201108
  4. FYCOMPA [Concomitant]
     Indication: EPILEPSY
     Dosage: 4 MG, DAILY
     Route: 048
     Dates: start: 201306
  5. RISPERIDONE [Concomitant]
     Indication: ABNORMAL BEHAVIOUR
     Dosage: 1.5 MG, DAILY
     Route: 048
     Dates: start: 200609
  6. VIGANTOLETTEN [Concomitant]
     Dosage: 1000 IU, DAILY
     Route: 048
     Dates: start: 201205
  7. MACROGOL [Concomitant]
     Dosage: 1 DF, 1 SACHET
     Route: 048
     Dates: start: 2008

REACTIONS (1)
  - Ventricular arrhythmia [Recovered/Resolved]
